FAERS Safety Report 8465092-1 (Version None)
Quarter: 2012Q2

REPORT INFORMATION
  Report Type: 
  Country: None (occurrence: None)
  Receive Date: 20120619
  Receipt Date: 20120606
  Transmission Date: 20120825
  Serious: Yes (Life-Threatening)
  Sender: FDA-Public Use
  Company Number: JP-2012-15423

PATIENT
  Age: 62 Year
  Sex: Male
  Weight: 58 kg

DRUGS (13)
  1. PLAVIX [Suspect]
     Indication: MYOCARDIAL INFARCTION
     Dosage: 75 MG MILLIGRAM(S), QD, ORAL
     Route: 048
     Dates: start: 20120409, end: 20120416
  2. CAPTOPRIL (CAPTOPRIL) TABLET [Concomitant]
  3. AMIODARONE HCL [Concomitant]
  4. FAMOTIDINE (FAMOTIDINE) TABLET [Concomitant]
  5. PLETAL [Suspect]
     Indication: MYOCARDIAL INFARCTION
     Dosage: 50 MG MILLIGRAM(S), BID, ORAL
     Route: 048
     Dates: start: 20120409, end: 20120416
  6. ACETAMINOPHEN (ACETAMINOPHEN) TABLET [Concomitant]
  7. CARVEDILOL (CARVEDILOL) TABLET [Concomitant]
  8. TOLLERODINE TARTRA (TOLTERODINE I-TARTRATE) CAPSULE [Concomitant]
  9. SENNOSIDE (SENNOSIDE) TABLET [Concomitant]
  10. ATORVASTATIN (ATORVASTATIN CALCIUM) TABLET [Concomitant]
  11. ALPRAZOLAM [Concomitant]
  12. AMOXYCILLIN+CLAVULANIC ACID (AMOXYCILLIN+CLAVULANIC ACID) INJECTION [Concomitant]
  13. NICERGOLIN (NICERGOLINE) TABLET [Concomitant]

REACTIONS (4)
  - HAEMORRHAGE INTRACRANIAL [None]
  - PYREXIA [None]
  - DECREASED APPETITE [None]
  - ANURIA [None]
